FAERS Safety Report 6375324-1 (Version None)
Quarter: 2009Q3

REPORT INFORMATION
  Report Type: 
  Country: None (occurrence: None)
  Receive Date: 20090924
  Receipt Date: 20090914
  Transmission Date: 20100115
  Serious: Yes (Hospitalization)
  Sender: FDA-Public Use
  Company Number: B0593001A

PATIENT
  Age: 55 Year
  Sex: Female

DRUGS (6)
  1. CARVEDILOL [Suspect]
     Indication: HYPERTENSION
     Route: 048
     Dates: start: 20070528, end: 20070604
  2. THIOPENTAL SODIUM [Suspect]
     Dosage: 300MG PER DAY
     Dates: start: 20070604, end: 20070604
  3. CANDESARTAN CILEXETIL [Concomitant]
     Dates: start: 20070528, end: 20070604
  4. FENTANYL TRANSDERMAL SYSTEM [Concomitant]
     Dates: start: 20070604, end: 20070604
  5. VECURONIUM BROMIDE [Concomitant]
     Dates: start: 20070604, end: 20070604
  6. SEVOFLURANE [Concomitant]
     Dates: start: 20070604, end: 20070604

REACTIONS (2)
  - ASTHMA [None]
  - ISCHAEMIA [None]
